FAERS Safety Report 4630447-X (Version None)
Quarter: 2005Q2

REPORT INFORMATION
  Report Type: 
  Country: None (occurrence: None)
  Receive Date: 20050405
  Receipt Date: 20050405
  Transmission Date: 20051028
  Serious: No
  Sender: FDA-Public Use
  Company Number: None

PATIENT
  Sex: Female
  Weight: 37.6 kg

DRUGS (2)
  1. DAUNORUBICIN HCL [Suspect]
     Dosage: 45 MG/M2
     Dates: start: 20040726
  2. CYTARABINE [Suspect]

REACTIONS (1)
  - LEUKOSTASIS [None]
